FAERS Safety Report 8243809-9 (Version None)
Quarter: 2012Q1

REPORT INFORMATION
  Report Type: 
  Country: None (occurrence: None)
  Receive Date: 20120329
  Receipt Date: 20120119
  Transmission Date: 20120608
  Serious: No
  Sender: FDA-Public Use
  Company Number: US-MYLANLABS-2012S1001267

PATIENT
  Age: 58 Year
  Sex: Female

DRUGS (4)
  1. EMSAM [Suspect]
     Indication: DEPRESSION
     Dosage: CHANGES Q.D.
     Route: 062
     Dates: start: 20120106
  2. LITHIUM CARBONATE [Concomitant]
  3. NORVASC [Concomitant]
     Indication: BLOOD PRESSURE INCREASED
  4. SEROQUEL [Concomitant]

REACTIONS (5)
  - GLOSSODYNIA [None]
  - MYALGIA [None]
  - ABDOMINAL PAIN UPPER [None]
  - BONE PAIN [None]
  - CYSTITIS [None]
